FAERS Safety Report 12273595 (Version 2)
Quarter: 2017Q1

REPORT INFORMATION
  Report Type: Spontaneous
  Country: US (occurrence: US)
  Receive Date: 20160415
  Receipt Date: 20170223
  Transmission Date: 20170428
  Serious: Yes (Life-Threatening, Hospitalization)
  Sender: FDA-Public Use
  Company Number: US-LANTHEUS-LMI-2016-00189

PATIENT
  Age: 45 Year
  Sex: Male
  Weight: 86 kg

DRUGS (1)
  1. DEFINITY [Suspect]
     Active Substance: PERFLUTREN
     Dosage: 2 ML, SINGLE
     Route: 040
     Dates: start: 20160404

REACTIONS (13)
  - Pallor [Unknown]
  - Flushing [Unknown]
  - Dizziness [Unknown]
  - Pruritus [Unknown]
  - Hypotension [Unknown]
  - Urticaria [Unknown]
  - Syncope [Unknown]
  - Lip swelling [Unknown]
  - Palpitations [Unknown]
  - Throat tightness [Unknown]
  - Rash papular [Unknown]
  - Dyspnoea [Unknown]
  - Swollen tongue [Unknown]

NARRATIVE: CASE EVENT DATE: 20160404
